FAERS Safety Report 5298700-7 (Version None)
Quarter: 2007Q2

REPORT INFORMATION
  Report Type: 
  Country: None (occurrence: None)
  Receive Date: 20070409
  Receipt Date: 20070402
  Transmission Date: 20071010
  Serious: Yes (Death)
  Sender: FDA-Public Use
  Company Number: 163-21880-07040200

PATIENT
  Age: 84 Year
  Sex: Male

DRUGS (1)
  1. REVLIMID [Suspect]
     Indication: LEUKAEMIA PLASMACYTIC
     Dosage: 25 MG, QD, ORAL
     Route: 048
     Dates: start: 20061114

REACTIONS (2)
  - MULTIPLE MYELOMA [None]
  - WHITE BLOOD CELL COUNT DECREASED [None]
